FAERS Safety Report 6307601-4 (Version None)
Quarter: 2009Q3

REPORT INFORMATION
  Report Type: 
  Country: None (occurrence: None)
  Receive Date: 20090812
  Receipt Date: 20090812
  Transmission Date: 20100115
  Serious: Yes (Hospitalization)
  Sender: FDA-Public Use
  Company Number: None

PATIENT
  Sex: Male
  Weight: 86.8 kg

DRUGS (2)
  1. CARBOPLATIN [Suspect]
     Dosage: 744 MG
  2. TAXOL [Suspect]
     Dosage: 240 MG

REACTIONS (9)
  - ASTHENIA [None]
  - ATRIAL FIBRILLATION [None]
  - CHILLS [None]
  - DISORIENTATION [None]
  - DRUG DOSE OMISSION [None]
  - HEART RATE IRREGULAR [None]
  - PLATELET COUNT DECREASED [None]
  - PNEUMONIA [None]
  - SEPTIC SHOCK [None]
